FAERS Safety Report 13580548 (Version 3)
Quarter: 2017Q3

REPORT INFORMATION
  Report Type: Spontaneous
  Country: JP (occurrence: JP)
  Receive Date: 20170525
  Receipt Date: 20170929
  Transmission Date: 20171127
  Serious: Yes (Other)
  Sender: FDA-Public Use
  Company Number: JP-009507513-1705JPN001360J

PATIENT
  Age: 40 Year
  Sex: Female

DRUGS (3)
  1. RIVOTRIL [Concomitant]
     Active Substance: CLONAZEPAM
     Dosage: UNK
     Route: 048
  2. BELSOMRA [Suspect]
     Active Substance: SUVOREXANT
     Dosage: 15 MG, QD
     Route: 048
     Dates: start: 20151028
  3. ROZEREM [Concomitant]
     Active Substance: RAMELTEON
     Dosage: 8 MG, UNK
     Route: 048

REACTIONS (4)
  - Narcolepsy [Recovering/Resolving]
  - Underdose [Unknown]
  - Sleep attacks [Recovering/Resolving]
  - Atonic seizures [Recovering/Resolving]

NARRATIVE: CASE EVENT DATE: 20151028
